FAERS Safety Report 6402659-6 (Version None)
Quarter: 2009Q4

REPORT INFORMATION
  Report Type: 
  Country: None (occurrence: None)
  Receive Date: 20091009
  Receipt Date: 20090930
  Transmission Date: 20100525
  Serious: Yes (Other)
  Sender: FDA-Public Use
  Company Number: ADR34252009

PATIENT
  Age: 69 Year
  Sex: Male

DRUGS (4)
  1. CIPROFLOXACIN [Suspect]
     Indication: URINARY TRACT INFECTION
     Dosage: 500 MG, ORAL
     Route: 048
     Dates: start: 20071114, end: 20071120
  2. PROPRANOLOL [Concomitant]
  3. VIRUS INFLUENZA [Concomitant]
  4. SUMATRIPTAN [Concomitant]

REACTIONS (6)
  - ABDOMINAL PAIN [None]
  - BLOOD PRESSURE DECREASED [None]
  - DYSPHAGIA [None]
  - HYPERHIDROSIS [None]
  - MOUTH ULCERATION [None]
  - PHARYNGEAL ULCERATION [None]
